FAERS Safety Report 21382488 (Version 1)
Quarter: 2022Q3

REPORT INFORMATION
  Report Type: Spontaneous
  Country: US (occurrence: None)
  Receive Date: 20220927
  Receipt Date: 20220927
  Transmission Date: 20221027
  Serious: Yes (Hospitalization)
  Sender: FDA-Public Use
  Company Number: US-ROCHE-3181974

PATIENT
  Age: 73 Year
  Sex: Female
  Weight: 69.916 kg

DRUGS (3)
  1. ESBRIET [Suspect]
     Active Substance: PIRFENIDONE
     Indication: Pulmonary fibrosis
     Dosage: YES
     Route: 048
     Dates: start: 202001
  2. MORPHINE [Suspect]
     Active Substance: MORPHINE
     Indication: Fracture pain
     Route: 065
     Dates: start: 202209, end: 202209
  3. PERCOCET [Suspect]
     Active Substance: ACETAMINOPHEN\OXYCODONE HYDROCHLORIDE
     Indication: Fracture pain
     Route: 065
     Dates: start: 202209, end: 202209

REACTIONS (6)
  - Fall [Recovered/Resolved]
  - Hip fracture [Recovered/Resolved]
  - Cerebral haemorrhage [Recovering/Resolving]
  - Nausea [Recovered/Resolved]
  - Vomiting [Recovered/Resolved]
  - Memory impairment [Recovered/Resolved]

NARRATIVE: CASE EVENT DATE: 20220609
